FAERS Safety Report 5284311-6 (Version None)
Quarter: 2007Q1

REPORT INFORMATION
  Report Type: 
  Country: None (occurrence: None)
  Receive Date: 20070327
  Receipt Date: 20070319
  Transmission Date: 20070707
  Serious: Yes (Disabling)
  Sender: FDA-Public Use
  Company Number: 100#03#2007-00917

PATIENT
  Age: 12 Year
  Sex: Male

DRUGS (1)
  1. SERTRALINE [Suspect]
     Indication: ANXIETY
     Dosage: 25 MG ONCE DAILY - TAKEN AT NIGHT (1/ 1DAYS), ORAL
     Route: 048
     Dates: start: 20060209, end: 20061113

REACTIONS (6)
  - DEPRESSION [None]
  - DRUG WITHDRAWAL SYNDROME [None]
  - EMOTIONAL DISORDER [None]
  - INSOMNIA [None]
  - LETHARGY [None]
  - TIC [None]
